FAERS Safety Report 7431609-9 (Version None)
Quarter: 2011Q2

REPORT INFORMATION
  Report Type: 
  Country: None (occurrence: None)
  Receive Date: 20110422
  Receipt Date: 20110206
  Transmission Date: 20111010
  Serious: No
  Sender: FDA-Public Use
  Company Number: US-TEVA-266418USA

PATIENT
  Sex: Female
  Weight: 53.118 kg

DRUGS (6)
  1. PLAN B ONE-STEP [Suspect]
     Indication: POST COITAL CONTRACEPTION
     Dosage: 1.5 MILLIGRAM;
     Route: 048
     Dates: start: 20110205, end: 20110205
  2. ZOLOFT [Concomitant]
     Indication: DEPRESSION
  3. FORADIL [Concomitant]
     Indication: ASTHMA
     Dates: start: 20080101
  4. ZOLOFT [Concomitant]
     Indication: ANXIETY
     Dosage: 50 MILLIGRAM;
     Route: 048
     Dates: start: 20060101
  5. PLAN B ONE-STEP [Suspect]
     Dosage: 1.5 MILLIGRAM;
     Route: 048
     Dates: start: 20110206, end: 20110206
  6. ASMANEX TWISTHALER [Concomitant]
     Indication: ASTHMA
     Dates: start: 20080101

REACTIONS (5)
  - VOMITING [None]
  - ABDOMINAL PAIN UPPER [None]
  - NAUSEA [None]
  - FATIGUE [None]
  - DIZZINESS [None]
